FAERS Safety Report 12143177 (Version 1)
Quarter: 2016Q1

REPORT INFORMATION
  Report Type: Report from Study
  Country: CA (occurrence: CA)
  Receive Date: 20160304
  Receipt Date: 20160304
  Transmission Date: 20160526
  Serious: Yes (Death)
  Sender: FDA-Public Use
  Company Number: PHHY2011CA107898

PATIENT
  Sex: Male

DRUGS (1)
  1. ZOMETA [Suspect]
     Active Substance: ZOLEDRONIC ACID
     Indication: RENAL CELL CARCINOMA
     Dosage: 3.3 MG, EVERY 4 WEEKS OR EVERY OTHER MONTH
     Route: 042
     Dates: start: 20110526

REACTIONS (5)
  - Death [Fatal]
  - Anion gap decreased [Unknown]
  - Dehydration [Unknown]
  - Vein disorder [Unknown]
  - Blood bicarbonate increased [Unknown]

NARRATIVE: CASE EVENT DATE: 2015
